FAERS Safety Report 9510664 (Version 1)
Quarter: 2013Q3

REPORT INFORMATION
  Report Type: Report from Study
  Country: US (occurrence: US)
  Receive Date: 20130909
  Receipt Date: 20130909
  Transmission Date: 20140515
  Serious: Yes (Other)
  Sender: FDA-Public Use
  Company Number: US-ABBOTT-13P-163-1141322-00

PATIENT
  Age: 56 Year
  Sex: Female
  Weight: 86.26 kg

DRUGS (2)
  1. HUMIRA [Suspect]
     Indication: CROHN^S DISEASE
     Dates: start: 20130702
  2. XARELTO [Suspect]
     Indication: THROMBOSIS
     Dates: start: 201307, end: 201308

REACTIONS (8)
  - Anaemia [Unknown]
  - Thrombosis [Unknown]
  - Joint swelling [Unknown]
  - Crohn^s disease [Unknown]
  - Nausea [Unknown]
  - Abdominal pain upper [Unknown]
  - Dizziness [Unknown]
  - Drug dose omission [Unknown]
